FAERS Safety Report 16977963 (Version 1)
Quarter: 2019Q4

REPORT INFORMATION
  Report Type: Spontaneous
  Country: US (occurrence: US)
  Receive Date: 20191031
  Receipt Date: 20191031
  Transmission Date: 20200122
  Serious: No
  Sender: FDA-Public Use
  Company Number: US-ELI_LILLY_AND_COMPANY-US201906014615

PATIENT
  Sex: Female

DRUGS (2)
  1. HUMALOG [Suspect]
     Active Substance: INSULIN LISPRO
     Indication: TYPE 2 DIABETES MELLITUS
     Dosage: 7 U, UNKNOWN (5-7 UNITS)
     Route: 058
     Dates: start: 201808
  2. HUMALOG [Suspect]
     Active Substance: INSULIN LISPRO
     Dosage: UNK, PRN
     Route: 058

REACTIONS (5)
  - Visual impairment [Unknown]
  - Drug ineffective [Unknown]
  - Malaise [Unknown]
  - Blood glucose increased [Recovering/Resolving]
  - Product storage error [Unknown]
